FAERS Safety Report 8459383-8 (Version None)
Quarter: 2012Q2

REPORT INFORMATION
  Report Type: 
  Country: None (occurrence: None)
  Receive Date: 20120622
  Receipt Date: 20120615
  Transmission Date: 20120825
  Serious: Yes (Other)
  Sender: FDA-Public Use
  Company Number: IT-BAYER-2012-059655

PATIENT

DRUGS (1)
  1. NEXAVAR [Suspect]
     Indication: HEPATIC NEOPLASM MALIGNANT
     Dosage: DAILY DOSE 800 MG
     Route: 048
     Dates: start: 20120328, end: 20120516

REACTIONS (13)
  - HEADACHE [None]
  - ASTHENIA [None]
  - MUSCULOSKELETAL PAIN [None]
  - HEPATIC ENZYME INCREASED [None]
  - ASCITES [None]
  - BLOOD PRESSURE SYSTOLIC INCREASED [None]
  - PYREXIA [None]
  - DIARRHOEA [None]
  - PORTAL VEIN THROMBOSIS [None]
  - DECREASED APPETITE [None]
  - WEIGHT DECREASED [None]
  - ABDOMINAL PAIN LOWER [None]
  - DISEASE PROGRESSION [None]
